FAERS Safety Report 8924460 (Version 1)
Quarter: 2012Q4

REPORT INFORMATION
  Report Type: 
  Country: ES (occurrence: ES)
  Receive Date: 20121126
  Receipt Date: 20121126
  Transmission Date: 20130627
  Serious: Yes (Death, Hospitalization, Other)
  Sender: FDA-Public Use
  Company Number: ES-PFIZER INC-2012294375

PATIENT
  Age: 27 Year
  Sex: Male

DRUGS (7)
  1. LYRICA [Suspect]
     Indication: LEG PARESIS
     Dosage: 75 mg, 2x/day
     Route: 048
     Dates: start: 20121001, end: 20121105
  2. FORTECORTIN [Suspect]
     Dosage: 1 mg, 2x/day
     Route: 048
     Dates: start: 20121025, end: 20121105
  3. TRYPTIZOL [Suspect]
     Indication: LEG PARESIS
     Dosage: 25 mg, 1x/day
     Route: 048
     Dates: start: 20121024, end: 20121027
  4. TRYPTIZOL [Suspect]
     Dosage: 50 mg, 1x/day
     Route: 048
     Dates: start: 20121028, end: 20121101
  5. TRYPTIZOL [Suspect]
     Dosage: 75 mg, 1x/day
     Route: 048
     Dates: start: 20121102, end: 20121105
  6. OMEPRAZOLE [Concomitant]
     Indication: PROPHYLAXIS NOS
     Dosage: 20 mg, 1x/day
     Route: 048
     Dates: start: 20121024, end: 20121105
  7. FORTECORTIN [Concomitant]
     Dosage: 48 mg, UNK
     Route: 030
     Dates: start: 20121001, end: 20121020

REACTIONS (6)
  - Completed suicide [Fatal]
  - Intervertebral disc protrusion [Unknown]
  - Depression [Unknown]
  - Anal sphincter atony [Unknown]
  - Insomnia [Unknown]
  - Speech disorder [Unknown]
